FAERS Safety Report 25017947 (Version 1)
Quarter: 2025Q1

REPORT INFORMATION
  Report Type: Spontaneous
  Country: US (occurrence: None)
  Receive Date: 20250226
  Receipt Date: 20250226
  Transmission Date: 20250409
  Serious: Yes (Death, Life-Threatening, Hospitalization, Other)
  Sender: FDA-CTU
  Company Number: None

PATIENT
  Age: 59 Year
  Sex: Male
  Weight: 75.15 kg

DRUGS (1)
  1. ROCEPHIN [Suspect]
     Active Substance: CEFTRIAXONE SODIUM
     Indication: Drug therapy
     Dates: start: 20250112

REACTIONS (4)
  - Rash [None]
  - Cardiac failure congestive [None]
  - Renal failure [None]
  - Liver injury [None]

NARRATIVE: CASE EVENT DATE: 20250112
